FAERS Safety Report 8589511-5 (Version None)
Quarter: 2012Q3

REPORT INFORMATION
  Report Type: 
  Country: None (occurrence: None)
  Receive Date: 20120813
  Receipt Date: 20120809
  Transmission Date: 20120928
  Serious: Yes (Death)
  Sender: FDA-Public Use
  Company Number: US-ELI_LILLY_AND_COMPANY-US201108006637

PATIENT
  Sex: Male

DRUGS (2)
  1. FORTEO [Suspect]
     Indication: OSTEOPOROSIS
     Dosage: 20 UG, QD
     Dates: start: 20110701
  2. REMICADE [Concomitant]

REACTIONS (6)
  - FEELING ABNORMAL [None]
  - MOVEMENT DISORDER [None]
  - DEATH [None]
  - PAIN [None]
  - MUSCLE SPASMS [None]
  - ARTHRALGIA [None]
